FAERS Safety Report 6912452-3 (Version None)
Quarter: 2010Q3

REPORT INFORMATION
  Report Type: 
  Country: None (occurrence: None)
  Receive Date: 20100806
  Receipt Date: 20080717
  Transmission Date: 20110219
  Serious: No
  Sender: FDA-Public Use
  Company Number: US-PFIZER INC-2008048405

PATIENT
  Sex: Female
  Weight: 58.6 kg

DRUGS (4)
  1. CYTOTEC [Suspect]
     Indication: SMEAR CERVIX
     Route: 067
     Dates: start: 20080501, end: 20080501
  2. CYTOTEC [Suspect]
     Indication: OFF LABEL USE
  3. AMOXICILLIN [Concomitant]
  4. KLONOPIN [Concomitant]
     Indication: ANXIETY

REACTIONS (6)
  - ANXIETY [None]
  - FEELING COLD [None]
  - HYPERVENTILATION [None]
  - NERVOUSNESS [None]
  - OFF LABEL USE [None]
  - TREMOR [None]
